FAERS Safety Report 5470679-4 (Version None)
Quarter: 2007Q3

REPORT INFORMATION
  Report Type: 
  Country: None (occurrence: None)
  Receive Date: 20070925
  Receipt Date: 20070910
  Transmission Date: 20080115
  Serious: Yes (Hospitalization)
  Sender: FDA-Public Use
  Company Number: IT-1163834

PATIENT
  Age: 54 Year
  Sex: Female

DRUGS (1)
  1. TRAVATAN [Suspect]
     Indication: GLAUCOMA
     Dosage: 2 GTTS DAILY
     Route: 047
     Dates: start: 20070704, end: 20070704

REACTIONS (3)
  - EYELID OEDEMA [None]
  - INSTILLATION SITE IRRITATION [None]
  - INSTILLATION SITE PAIN [None]
